FAERS Safety Report 16250655 (Version 1)
Quarter: 2019Q2

REPORT INFORMATION
  Report Type: Spontaneous
  Country: US (occurrence: US)
  Receive Date: 20190426
  Receipt Date: 20190426
  Transmission Date: 20190711
  Serious: Yes (Life-Threatening, Disabling)
  Sender: FDA-Public Use
  Company Number: None

PATIENT
  Age: 70 Year
  Sex: Female
  Weight: 56.25 kg

DRUGS (9)
  1. BUSPIRONE [Suspect]
     Active Substance: BUSPIRONE HYDROCHLORIDE
     Indication: ANXIETY
     Dosage: ?          QUANTITY:270 TABLET(S);?
     Route: 048
     Dates: start: 20161128
  2. TENS UNIT [Concomitant]
  3. MORPHINE SULFATE. [Concomitant]
     Active Substance: MORPHINE SULFATE
  4. IBUPROFEN. [Concomitant]
     Active Substance: IBUPROFEN
  5. METOPROLOL. [Concomitant]
     Active Substance: METOPROLOL
  6. PROMETHAZINE [Concomitant]
     Active Substance: PROMETHAZINE\PROMETHAZINE HYDROCHLORIDE
  7. DIAZEPAM. [Concomitant]
     Active Substance: DIAZEPAM
  8. MYRBETRIQ [Concomitant]
     Active Substance: MIRABEGRON
  9. BUSPIRONE [Suspect]
     Active Substance: BUSPIRONE HYDROCHLORIDE
     Indication: DEPRESSION
     Dosage: ?          QUANTITY:270 TABLET(S);?
     Route: 048
     Dates: start: 20161128

REACTIONS (6)
  - Vision blurred [None]
  - Confusional state [None]
  - Headache [None]
  - Tremor [None]
  - Amnesia [None]
  - Ocular discomfort [None]

NARRATIVE: CASE EVENT DATE: 20161128
